FAERS Safety Report 11422872 (Version 1)
Quarter: 2015Q3

REPORT INFORMATION
  Report Type: Spontaneous
  Country: US (occurrence: None)
  Receive Date: 20150826
  Receipt Date: 20150826
  Transmission Date: 20151125
  Serious: Yes (Other)
  Sender: FDA-Public Use
  Company Number: None

PATIENT
  Age: 49 Year
  Sex: Female
  Weight: 159.21 kg

DRUGS (7)
  1. METHADONE [Concomitant]
     Active Substance: METHADONE HYDROCHLORIDE
  2. PROTONIX [Concomitant]
     Active Substance: PANTOPRAZOLE SODIUM
  3. MIRAPEX [Suspect]
     Active Substance: PRAMIPEXOLE DIHYDROCHLORIDE
     Indication: SLEEP DISORDER
     Dosage: 1 PILL AT NIGHT
     Route: 048
     Dates: start: 20150806, end: 20150824
  4. NORCO [Concomitant]
     Active Substance: ACETAMINOPHEN\HYDROCODONE BITARTRATE
  5. MIRAPEX [Suspect]
     Active Substance: PRAMIPEXOLE DIHYDROCHLORIDE
     Indication: RESTLESS LEGS SYNDROME
     Dosage: 1 PILL AT NIGHT
     Route: 048
     Dates: start: 20150806, end: 20150824
  6. VITAMIN B12 [Concomitant]
     Active Substance: CYANOCOBALAMIN
  7. ZANAFLEX [Concomitant]
     Active Substance: TIZANIDINE HYDROCHLORIDE

REACTIONS (17)
  - Dyspnoea [None]
  - Diplopia [None]
  - Anxiety [None]
  - Sleep terror [None]
  - Insomnia [None]
  - Muscular weakness [None]
  - Disturbance in attention [None]
  - Restlessness [None]
  - Chest pain [None]
  - Lip dry [None]
  - Panic attack [None]
  - Hypophagia [None]
  - Chapped lips [None]
  - Palpitations [None]
  - Stress [None]
  - Dehydration [None]
  - Drug hypersensitivity [None]

NARRATIVE: CASE EVENT DATE: 20150825
